FAERS Safety Report 4282355-4 (Version None)
Quarter: 2004Q1

REPORT INFORMATION
  Report Type: 
  Country: None (occurrence: None)
  Receive Date: 20040108
  Receipt Date: 20030911
  Transmission Date: 20041129
  Serious: Yes (Death)
  Sender: FDA-Public Use
  Company Number: HQ2118830APR2002

PATIENT
  Age: 54 Year
  Sex: Male
  Weight: 90.34 kg

DRUGS (2)
  1. ROBITUSSIN CF [Suspect]
     Dosage: ORAL
     Route: 048
     Dates: end: 20000501
  2. PRIMATENE MIST [Suspect]
     Indication: NASAL CONGESTION

REACTIONS (2)
  - CARDIAC ARREST [None]
  - HAEMORRHAGIC STROKE [None]
